FAERS Safety Report 4577821-8 (Version None)
Quarter: 2005Q1

REPORT INFORMATION
  Report Type: 
  Country: None (occurrence: None)
  Receive Date: 20050209
  Receipt Date: 20050124
  Transmission Date: 20050727
  Serious: Yes (Hospitalization)
  Sender: FDA-Public Use
  Company Number: B0078328A

PATIENT
  Age: 50 Year
  Sex: Female

DRUGS (1)
  1. IMITREX [Suspect]
     Indication: HEADACHE
     Dosage: 400MG WEEKLY/ORAL
     Route: 048
     Dates: end: 19991022

REACTIONS (2)
  - HEADACHE [None]
  - MYOCARDIAL INFARCTION [None]
